FAERS Safety Report 5123624-5 (Version None)
Quarter: 2006Q4

REPORT INFORMATION
  Report Type: 
  Country: None (occurrence: None)
  Receive Date: 20060910
  Receipt Date: 20050929
  Transmission Date: 20070319
  Serious: Yes (Other)
  Sender: FDA-Public Use
  Company Number: US96054582A

PATIENT
  Age: 52 Year
  Sex: Female
  Weight: 66 kg

DRUGS (9)
  1. HUMALOG [Suspect]
     Indication: DIABETES MELLITUS
     Dosage: AS NEEDED
  2. HUMULIN L [Suspect]
     Indication: DIABETES MELLITUS
     Dosage: SUBCUTANEOUS
     Route: 058
     Dates: start: 19951201, end: 20000101
  3. HUMULIN R [Suspect]
     Indication: DIABETES MELLITUS
     Dosage: SUBCUTANEOUS
     Route: 058
     Dates: start: 19951201, end: 19960201
  4. ILETIN [Suspect]
     Dates: start: 19650101
  5. ILETIN [Suspect]
  6. VASOTEC [Concomitant]
  7. PREMARIN [Concomitant]
  8. PROVERA [Concomitant]
  9. LANTUS [Concomitant]

REACTIONS (4)
  - BLOOD GLUCOSE DECREASED [None]
  - BLOOD GLUCOSE INCREASED [None]
  - HYPOGLYCAEMIA UNAWARENESS [None]
  - PANCREATIC DISORDER [None]
